FAERS Safety Report 26199404 (Version 1)
Quarter: 2025Q4

REPORT INFORMATION
  Report Type: Spontaneous
  Country: US (occurrence: US)
  Receive Date: 20251225
  Receipt Date: 20251225
  Transmission Date: 20260117
  Serious: No
  Sender: DR REDDYS
  Company Number: US-DRL-USA-USA/2025/12/018724

PATIENT
  Sex: Male

DRUGS (1)
  1. FLUOROURACIL [Suspect]
     Active Substance: FLUOROURACIL
     Indication: Precancerous skin lesion
     Dosage: FOR TWO TO THREE WEEKS?SN: HNY6176I2D75
     Route: 061

REACTIONS (3)
  - Skin irritation [Unknown]
  - Scab [Unknown]
  - Sleep disorder [Unknown]
